FAERS Safety Report 5477482-X (Version None)
Quarter: 2007Q4

REPORT INFORMATION
  Report Type: 
  Country: None (occurrence: None)
  Receive Date: 20071004
  Receipt Date: 20070924
  Transmission Date: 20080405
  Serious: Yes (Other)
  Sender: FDA-Public Use
  Company Number: US-PFIZER INC-2007081091

PATIENT
  Age: 38 Year
  Sex: Female
  Weight: 66.363 kg

DRUGS (3)
  1. CHANTIX [Suspect]
     Indication: SMOKING CESSATION THERAPY
     Route: 048
  2. PREDNISONE [Concomitant]
     Indication: ASTHMA
     Route: 048
  3. ALL OTHER THERAPEUTIC PRODUCTS [Concomitant]
     Indication: ASTHMA

REACTIONS (5)
  - ANXIETY [None]
  - ASTHMA [None]
  - CONDITION AGGRAVATED [None]
  - DYSGEUSIA [None]
  - TOOTHACHE [None]
